FAERS Safety Report 9296938 (Version 1)
Quarter: 2013Q2

REPORT INFORMATION
  Report Type: Spontaneous
  Country: IN (occurrence: IN)
  Receive Date: 20130518
  Receipt Date: 20130518
  Transmission Date: 20140414
  Serious: Yes (Death)
  Sender: FDA-Public Use
  Company Number: IN-ROCHE-1224433

PATIENT
  Sex: Female

DRUGS (3)
  1. HERCEPTIN [Suspect]
     Indication: NEOPLASM MALIGNANT
     Route: 065
  2. TAXOTERE [Suspect]
     Indication: NEOPLASM MALIGNANT
     Route: 065
  3. CARBOPLATIN [Suspect]
     Indication: NEOPLASM MALIGNANT
     Route: 065

REACTIONS (1)
  - Treatment failure [Fatal]
